FAERS Safety Report 8917097 (Version 1)
Quarter: 2012Q4

REPORT INFORMATION
  Report Type: 
  Country: US (occurrence: US)
  Receive Date: 20121120
  Receipt Date: 20121120
  Transmission Date: 20130627
  Serious: No
  Sender: FDA-Public Use
  Company Number: US-ALLERGAN-1214470US

PATIENT
  Age: 75 Year
  Sex: Female

DRUGS (4)
  1. LASTACAFT [Suspect]
     Indication: WATERING EYES
     Dosage: before going to bed
     Route: 047
  2. MUCOPHEN [Concomitant]
     Indication: DRUG USE FOR UNKNOWN INDICATION
     Dosage: UNK, qhs
  3. HYDROXYZINE [Concomitant]
     Indication: DRUG USE FOR UNKNOWN INDICATION
     Dosage: UNK UNK, qhs
  4. AMBIEN [Suspect]
     Indication: DRUG USE FOR UNKNOWN INDICATION
     Dosage: 2.5 mg, single
     Route: 048

REACTIONS (4)
  - Hallucination, visual [Recovered/Resolved]
  - Insomnia [Unknown]
  - Hallucination, auditory [Unknown]
  - Off label use [Unknown]
